FAERS Safety Report 6975369-4 (Version None)
Quarter: 2010Q3

REPORT INFORMATION
  Report Type: 
  Country: None (occurrence: None)
  Receive Date: 20100910
  Receipt Date: 20090311
  Transmission Date: 20110219
  Serious: No
  Sender: FDA-Public Use
  Company Number: US-WYE-H08545709

PATIENT
  Sex: Female
  Weight: 95.34 kg

DRUGS (7)
  1. PRISTIQ [Suspect]
     Indication: DEPRESSION
     Route: 048
     Dates: start: 20090217
  2. ELAVIL [Concomitant]
  3. ABILIFY [Concomitant]
  4. BUMETANIDE [Concomitant]
  5. ESTRADIOL [Concomitant]
  6. TENORMIN [Concomitant]
  7. ATORVASTATIN [Concomitant]

REACTIONS (2)
  - OXYGEN SATURATION DECREASED [None]
  - PREMATURE RECOVERY FROM ANAESTHESIA [None]
